FAERS Safety Report 7624918-1 (Version None)
Quarter: 2011Q3

REPORT INFORMATION
  Report Type: 
  Country: None (occurrence: None)
  Receive Date: 20110720
  Receipt Date: 20110711
  Transmission Date: 20111222
  Serious: Yes (Hospitalization, Other)
  Sender: FDA-Public Use
  Company Number: US-ASTRAZENECA-2009UW10141

PATIENT
  Age: 80 Year
  Sex: Female

DRUGS (1)
  1. CRESTOR [Suspect]
     Route: 048

REACTIONS (6)
  - RENAL FAILURE CHRONIC [None]
  - TREMOR [None]
  - OSTEOPOROSIS [None]
  - DRUG DOSE OMISSION [None]
  - ESCHERICHIA INFECTION [None]
  - MUSCLE SPASMS [None]
